FAERS Safety Report 15366225 (Version 2)
Quarter: 2018Q4

REPORT INFORMATION
  Report Type: Report from Study
  Country: CA (occurrence: CA)
  Receive Date: 20180910
  Receipt Date: 20181001
  Transmission Date: 20190204
  Serious: Yes (Disabling, Other)
  Sender: FDA-Public Use
  Company Number: CA-SA-2017SA189786

PATIENT
  Age: 40 Year
  Sex: Female

DRUGS (10)
  1. ALEMTUZUMAB [Suspect]
     Active Substance: ALEMTUZUMAB
     Dosage: 12 MG,QD
     Route: 041
     Dates: start: 20170925, end: 20170929
  2. RANITIDINE. [Concomitant]
     Active Substance: RANITIDINE
     Indication: PREMEDICATION
     Dosage: 150 MG,UNK
     Route: 048
     Dates: start: 20170925, end: 20170929
  3. ACICLOVIR [Concomitant]
     Active Substance: ACYCLOVIR
     Indication: PREMEDICATION
     Dosage: 200 MG,BID
     Route: 048
     Dates: start: 20170925
  4. PARACETAMOL [Concomitant]
     Active Substance: ACETAMINOPHEN
     Indication: PREMEDICATION
     Dosage: UNK UNK,UNK
     Route: 048
     Dates: start: 20170925, end: 20170929
  5. ADVIL [IBUPROFEN] [Concomitant]
     Active Substance: IBUPROFEN
     Dosage: UNK UNK, PRN
     Route: 048
     Dates: start: 20171009
  6. REACTINE [CETIRIZINE HYDROCHLORIDE] [Concomitant]
     Active Substance: CETIRIZINE HYDROCHLORIDE
     Indication: INFUSION RELATED REACTION
  7. METHYLPREDNISOLONE. [Concomitant]
     Active Substance: METHYLPREDNISOLONE
     Indication: PREMEDICATION
     Dosage: 1 G,UNK
     Route: 042
     Dates: start: 20170925, end: 20170927
  8. REACTINE [CETIRIZINE HYDROCHLORIDE] [Concomitant]
     Active Substance: CETIRIZINE HYDROCHLORIDE
     Indication: PREMEDICATION
     Dosage: 10 MG,UNK
     Route: 048
     Dates: start: 20170925, end: 20170929
  9. RANITIDINE. [Concomitant]
     Active Substance: RANITIDINE
     Indication: INFUSION RELATED REACTION
     Dosage: UNK UNK,PRN
     Route: 048
     Dates: start: 20171011
  10. BENADRYL [Concomitant]
     Active Substance: DIPHENHYDRAMINE HYDROCHLORIDE
     Indication: INFUSION RELATED REACTION
     Dosage: UNK UNK,PRN
     Route: 048
     Dates: start: 20171011

REACTIONS (42)
  - Pain in extremity [Recovered/Resolved]
  - Pain [Recovered/Resolved]
  - Hypotension [Recovered/Resolved]
  - Lymphocyte count decreased [Not Recovered/Not Resolved]
  - Asthenia [Not Recovered/Not Resolved]
  - Red blood cells urine [Recovered/Resolved]
  - Musculoskeletal stiffness [Recovering/Resolving]
  - Peripheral swelling [Recovered/Resolved]
  - Ill-defined disorder [Not Recovered/Not Resolved]
  - Malaise [Recovered/Resolved]
  - Platelet count decreased [Recovered/Resolved]
  - Fatigue [Not Recovered/Not Resolved]
  - Pain in extremity [Recovered/Resolved]
  - Bacterial test positive [Not Recovered/Not Resolved]
  - Feeling abnormal [Recovered/Resolved]
  - Insomnia [Recovered/Resolved]
  - Balance disorder [Not Recovered/Not Resolved]
  - Joint injury [Recovering/Resolving]
  - Mean cell haemoglobin concentration decreased [Recovered/Resolved]
  - Blood creatinine increased [Recovered/Resolved]
  - White blood cells urine positive [Recovered/Resolved]
  - Pyrexia [Recovered/Resolved]
  - Sinusitis [Recovered/Resolved]
  - Limb discomfort [Recovered/Resolved]
  - Abdominal distension [Recovering/Resolving]
  - Musculoskeletal pain [Recovered/Resolved]
  - Back pain [Not Recovered/Not Resolved]
  - Muscular weakness [Not Recovered/Not Resolved]
  - Condition aggravated [Recovered/Resolved]
  - Multiple sclerosis relapse [Recovered/Resolved]
  - Condition aggravated [Recovering/Resolving]
  - Chest pain [Recovered/Resolved]
  - Cells in urine [Not Recovered/Not Resolved]
  - Cystitis [Recovering/Resolving]
  - Mobility decreased [Not Recovered/Not Resolved]
  - Serum ferritin decreased [Unknown]
  - Discomfort [Recovered/Resolved]
  - Ligament rupture [Recovering/Resolving]
  - Fall [Recovering/Resolving]
  - Muscular weakness [Not Recovered/Not Resolved]
  - Dizziness [Recovered/Resolved]
  - Tachycardia [Recovered/Resolved]

NARRATIVE: CASE EVENT DATE: 2017
